FAERS Safety Report 6013540-9 (Version None)
Quarter: 2008Q4

REPORT INFORMATION
  Report Type: 
  Country: None (occurrence: None)
  Receive Date: 20081219
  Receipt Date: 20081216
  Transmission Date: 20090506
  Serious: Yes (Life-Threatening, Hospitalization)
  Sender: FDA-Public Use
  Company Number: PHHY2008BR32065

PATIENT
  Sex: Female
  Weight: 78 kg

DRUGS (2)
  1. TEGRETOL [Suspect]
     Indication: CONVULSION
     Dosage: 1 DF, QD
     Route: 048
  2. TEGRETOL [Suspect]
     Indication: ELECTROENCEPHALOGRAM ABNORMAL

REACTIONS (4)
  - DRUG EXPOSURE DURING PREGNANCY [None]
  - NORMAL NEWBORN [None]
  - RENAL DISORDER [None]
  - SUPPRESSED LACTATION [None]
